FAERS Safety Report 8847734 (Version 2)
Quarter: 2012Q4

REPORT INFORMATION
  Report Type: 
  Country: GB (occurrence: GB)
  Receive Date: 20121018
  Receipt Date: 20121022
  Transmission Date: 20130627
  Serious: Yes (Other)
  Sender: FDA-Public Use
  Company Number: GB-PFIZER INC-2012255791

PATIENT

DRUGS (1)
  1. SUTENT [Suspect]

REACTIONS (1)
  - Leukoencephalopathy [Unknown]
